FAERS Safety Report 4632250-3 (Version None)
Quarter: 2005Q2

REPORT INFORMATION
  Report Type: 
  Country: None (occurrence: None)
  Receive Date: 20050411
  Receipt Date: 20050215
  Transmission Date: 20051028
  Serious: Yes (Other)
  Sender: FDA-Public Use
  Company Number: US-ROCHE-396173

PATIENT
  Age: 45 Year
  Sex: Male
  Weight: 82.1 kg

DRUGS (2)
  1. FUZEON [Suspect]
     Indication: HIV INFECTION
     Route: 058
     Dates: start: 20030611, end: 20030904
  2. FUZEON [Suspect]
     Route: 058
     Dates: start: 20050204

REACTIONS (4)
  - ARTHRALGIA [None]
  - INJECTION SITE REACTION [None]
  - SWELLING [None]
  - URTICARIA [None]
